FAERS Safety Report 7704879-7 (Version None)
Quarter: 2011Q3

REPORT INFORMATION
  Report Type: 
  Country: None (occurrence: None)
  Receive Date: 20110823
  Receipt Date: 20110818
  Transmission Date: 20111222
  Serious: No
  Sender: FDA-Public Use
  Company Number: US-PFIZER INC-2011142283

PATIENT
  Sex: Male

DRUGS (6)
  1. AVELOX [Concomitant]
     Indication: INFECTION
     Dosage: UNK
     Dates: start: 20060101, end: 20090101
  2. CHANTIX [Suspect]
     Indication: SMOKING CESSATION THERAPY
     Dosage: STARTER PACK AND CONTINUING PACKS
     Route: 048
     Dates: start: 20080717, end: 20090301
  3. PROTONIX [Concomitant]
     Indication: GASTROOESOPHAGEAL REFLUX DISEASE
     Dosage: UNK
     Dates: start: 20030101, end: 20090101
  4. LEVAQUIN [Concomitant]
     Indication: INFECTION
     Dosage: UNK
     Dates: start: 20060101, end: 20100101
  5. PULMICORT [Concomitant]
     Indication: CHRONIC OBSTRUCTIVE PULMONARY DISEASE
     Dosage: UNK
     Route: 045
     Dates: start: 20060101, end: 20090101
  6. ADVAIR DISKUS 100/50 [Concomitant]
     Indication: CHRONIC OBSTRUCTIVE PULMONARY DISEASE
     Dosage: UNK
     Dates: start: 20060101, end: 20090101

REACTIONS (3)
  - DEPRESSION [None]
  - PANIC ATTACK [None]
  - ANXIETY [None]
